FAERS Safety Report 6249887-0 (Version None)
Quarter: 2009Q2

REPORT INFORMATION
  Report Type: 
  Country: None (occurrence: None)
  Receive Date: 20090629
  Receipt Date: 20090619
  Transmission Date: 20091009
  Serious: Yes (Hospitalization, Other)
  Sender: FDA-Public Use
  Company Number: US-MYLANLABS-2009S1011112

PATIENT
  Age: 74 Year
  Sex: Male

DRUGS (2)
  1. SUNITINIB [Suspect]
  2. MAXZIDE [Suspect]
     Indication: HYPERTENSION
     Route: 048

REACTIONS (4)
  - CONVULSION [None]
  - HYPONATRAEMIA [None]
  - NAUSEA [None]
  - VOMITING [None]
